FAERS Safety Report 15853507 (Version 3)
Quarter: 2019Q1

REPORT INFORMATION
  Report Type: Spontaneous
  Country: DE (occurrence: DE)
  Receive Date: 20190122
  Receipt Date: 20190204
  Transmission Date: 20190417
  Serious: Yes (Life-Threatening)
  Sender: FDA-Public Use
  Company Number: DE-GLAXOSMITHKLINE-DE2019GSK003236

PATIENT
  Age: 71 Year
  Sex: Female

DRUGS (2)
  1. SULTANOL [Suspect]
     Active Substance: ALBUTEROL SULFATE
     Indication: ASTHMA-CHRONIC OBSTRUCTIVE PULMONARY DISEASE OVERLAP SYNDROME
     Dosage: UNK, 100 MCG
     Dates: start: 20181222, end: 20181222
  2. URBASON [Concomitant]
     Active Substance: METHYLPREDNISOLONE
     Indication: ASTHMA-CHRONIC OBSTRUCTIVE PULMONARY DISEASE OVERLAP SYNDROME
     Dosage: 1 MG, QD

REACTIONS (2)
  - Drug effect incomplete [Recovered/Resolved]
  - Product complaint [Unknown]
